FAERS Safety Report 13372737 (Version 1)
Quarter: 2017Q1

REPORT INFORMATION
  Report Type: Spontaneous
  Country: US (occurrence: US)
  Receive Date: 20170327
  Receipt Date: 20170327
  Transmission Date: 20170429
  Serious: Yes (Hospitalization)
  Sender: FDA-Public Use
  Company Number: US-FRESENIUS KABI-FK201702320

PATIENT
  Age: 9 Year
  Sex: Male

DRUGS (6)
  1. THIOTEPA. [Suspect]
     Active Substance: THIOTEPA
     Indication: CHEMOTHERAPY
     Route: 065
  2. DEXAMETHASONE INJECTION (MANUFACTURER UNKNOWN) [Suspect]
     Active Substance: DEXAMETHASONE
     Indication: CHEMOTHERAPY
     Route: 065
  3. FILGRASTIM [Suspect]
     Active Substance: FILGRASTIM
     Indication: CHEMOTHERAPY
     Route: 065
  4. VINORELBINE [Suspect]
     Active Substance: VINORELBINE\VINORELBINE TARTRATE
     Indication: CHEMOTHERAPY
     Route: 065
  5. TOPOTECAN [Suspect]
     Active Substance: TOPOTECAN HYDROCHLORIDE
     Indication: CHEMOTHERAPY
     Route: 065
  6. GEMCITABINE [Suspect]
     Active Substance: GEMCITABINE\GEMCITABINE HYDROCHLORIDE
     Indication: CHEMOTHERAPY
     Route: 065

REACTIONS (2)
  - Concomitant disease progression [Unknown]
  - Colitis [Unknown]

NARRATIVE: CASE EVENT DATE: 2016
